FAERS Safety Report 15553596 (Version 1)
Quarter: 2018Q4

REPORT INFORMATION
  Report Type: Spontaneous
  Country: US (occurrence: US)
  Receive Date: 20181026
  Receipt Date: 20181026
  Transmission Date: 20190205
  Serious: No
  Sender: FDA-Public Use
  Company Number: US-BAUSCH-BL-2018-028863

PATIENT
  Age: 68 Year
  Sex: Female
  Weight: 52.21 kg

DRUGS (1)
  1. LATANOPROST. [Suspect]
     Active Substance: LATANOPROST
     Indication: GLAUCOMA
     Dosage: INSTILLED ONE DROP IN EACH EYE
     Route: 047
     Dates: start: 201807, end: 20181017

REACTIONS (3)
  - Purulent discharge [Recovering/Resolving]
  - Lacrimation increased [Recovering/Resolving]
  - Foreign body sensation in eyes [Recovering/Resolving]

NARRATIVE: CASE EVENT DATE: 20181016
